FAERS Safety Report 16335731 (Version 1)
Quarter: 2019Q2

REPORT INFORMATION
  Report Type: Spontaneous
  Country: US (occurrence: US)
  Receive Date: 20190521
  Receipt Date: 20190521
  Transmission Date: 20190711
  Serious: No
  Sender: FDA-Public Use
  Company Number: US-DRREDDYS-USA/USA/18/0100898

PATIENT
  Sex: Female

DRUGS (1)
  1. RANITIDINE TABLETS 75 MG [Suspect]
     Active Substance: RANITIDINE
     Indication: DYSPEPSIA
     Route: 065

REACTIONS (2)
  - Exposure during pregnancy [Unknown]
  - Drug ineffective [Unknown]
